FAERS Safety Report 10056017 (Version 1)
Quarter: 2014Q2

REPORT INFORMATION
  Report Type: Spontaneous
  Country: US (occurrence: None)
  Receive Date: 20140402
  Receipt Date: 20140402
  Transmission Date: 20141212
  Serious: Yes (Other)
  Sender: FDA-Public Use
  Company Number: None

PATIENT
  Age: 36 Year
  Sex: Male
  Weight: 52.62 kg

DRUGS (5)
  1. MYOBLOC [Suspect]
     Indication: HEMIPLEGIA
     Dosage: 40000 UNITS  ONCE  INTRAMUSCULAR
     Route: 030
     Dates: start: 20131223, end: 20131223
  2. ENOXAPARIN SODIUM [Concomitant]
  3. BACLOFEN [Concomitant]
  4. CITALOPRAM [Concomitant]
  5. PANTOPRAZOLE [Concomitant]

REACTIONS (4)
  - Muscle twitching [None]
  - Drug effect decreased [None]
  - Dysphagia [None]
  - Vision blurred [None]
